FAERS Safety Report 5087929-9 (Version None)
Quarter: 2006Q3

REPORT INFORMATION
  Report Type: 
  Country: None (occurrence: None)
  Receive Date: 20060821
  Receipt Date: 20060811
  Transmission Date: 20061208
  Serious: Yes (Hospitalization, Other)
  Sender: FDA-Public Use
  Company Number: 2006-08-0939

PATIENT
  Age: 57 Year
  Sex: Female

DRUGS (10)
  1. PEG-INTRON (INTERFERON ALFA-2B)  REDIPEN [Suspect]
     Indication: HEPATITIS C
     Dosage: SEE IMAGE
     Route: 058
     Dates: start: 20060507, end: 20060801
  2. PEG-INTRON (INTERFERON ALFA-2B)  REDIPEN [Suspect]
     Indication: HEPATITIS C
     Dosage: SEE IMAGE
     Route: 058
     Dates: start: 20060801, end: 20060817
  3. PEG-INTRON (INTERFERON ALFA-2B)  REDIPEN [Suspect]
     Indication: HEPATITIS C
     Dosage: SEE IMAGE
     Route: 058
     Dates: start: 20060507
  4. PEG-INTRON (INTERFERON ALFA-2B)  REDIPEN [Suspect]
     Indication: HEPATITIS C
     Dosage: SEE IMAGE
     Route: 058
     Dates: start: 20060817
  5. RIBAVIRIN [Suspect]
     Indication: HEPATITIS C
     Dosage: 800 MG QD ORAL
     Route: 048
     Dates: start: 20060507
  6. RIBAVIRIN [Suspect]
     Indication: HEPATITIS C
     Dosage: 800 MG QD ORAL
     Route: 048
     Dates: start: 20060801
  7. RIBAVIRIN [Suspect]
     Indication: HEPATITIS C
     Dosage: 800 MG QD ORAL
     Route: 048
     Dates: start: 20060817
  8. AVAPRO [Concomitant]
  9. NASALCROM [Concomitant]
  10. NORVASC [Concomitant]

REACTIONS (7)
  - ANAEMIA [None]
  - EPISTAXIS [None]
  - GASTRITIS [None]
  - GASTROINTESTINAL HAEMORRHAGE [None]
  - PLATELET COUNT DECREASED [None]
  - THROMBOSIS [None]
  - WHITE BLOOD CELL COUNT DECREASED [None]
